FAERS Safety Report 4428983-4 (Version None)
Quarter: 2004Q3

REPORT INFORMATION
  Report Type: 
  Country: None (occurrence: None)
  Receive Date: 20040818
  Receipt Date: 20040811
  Transmission Date: 20050211
  Serious: Yes (Other)
  Sender: FDA-Public Use
  Company Number: PHBS2004IT10665

PATIENT
  Age: 71 Year
  Sex: Male

DRUGS (7)
  1. CYCLOSPORINE [Suspect]
     Indication: HEART TRANSPLANT
     Dosage: 5 MG/KG/D
     Dates: start: 19900901
  2. ANTITHYMOCYTE IMMUNOGLOBULIN (RABBIT) [Suspect]
     Indication: HEART TRANSPLANT
     Dosage: 2.5 MG/KG/D
     Route: 042
     Dates: start: 19900901
  3. AZATHIOPRINE [Suspect]
     Indication: HEART TRANSPLANT
     Dosage: 2 MG/KG/D
     Dates: start: 19900901
  4. PREDNISONE [Suspect]
     Indication: HEART TRANSPLANT
     Dosage: 0.2 MG/KG/D
     Dates: start: 19900901
  5. METHYLPREDNISOLONE [Suspect]
     Dosage: 500 MG, ONCE/SINGLE
     Route: 042
  6. METHYLPREDNISOLONE [Suspect]
     Dosage: 125 MG, Q12H, 3 DOSES
     Route: 042
  7. CHOP [Suspect]

REACTIONS (7)
  - BONE MARROW DEPRESSION [None]
  - ENTEROCOLITIS [None]
  - EPSTEIN-BARR VIRUS INFECTION [None]
  - HEART TRANSPLANT REJECTION [None]
  - LYMPHADENOPATHY [None]
  - MYOCARDIAL ISCHAEMIA [None]
  - PERIPHERAL T-CELL LYMPHOMA UNSPECIFIED [None]
